FAERS Safety Report 13856692 (Version 1)
Quarter: 2017Q3

REPORT INFORMATION
  Report Type: Spontaneous
  Country: US (occurrence: US)
  Receive Date: 20170810
  Receipt Date: 20170810
  Transmission Date: 20171127
  Serious: No
  Sender: FDA-Public Use
  Company Number: US-ROCHE-1173951

PATIENT
  Age: 52 Year
  Sex: Female
  Weight: 73.55 kg

DRUGS (5)
  1. MAGNESIUM GLUCONATE [Concomitant]
     Active Substance: MAGNESIUM GLUCONATE
     Route: 048
  2. TAMIFLU [Suspect]
     Active Substance: OSELTAMIVIR PHOSPHATE
     Indication: INFLUENZA
     Route: 048
     Dates: start: 20121219, end: 20121221
  3. ANUSOL HC [Suspect]
     Active Substance: HYDROCORTISONE
     Indication: PRODUCT USED FOR UNKNOWN INDICATION
     Dosage: BID AS REQUIRED
     Route: 054
  4. CALCIUM CITRATE [Concomitant]
     Active Substance: CALCIUM CITRATE
     Route: 048
  5. FISH OIL [Concomitant]
     Active Substance: FISH OIL
     Route: 048

REACTIONS (12)
  - Feeling abnormal [Not Recovered/Not Resolved]
  - Agitation [Recovered/Resolved]
  - Panic reaction [Recovered/Resolved]
  - Influenza [Not Recovered/Not Resolved]
  - Disturbance in attention [Not Recovered/Not Resolved]
  - Crying [Not Recovered/Not Resolved]
  - Nausea [Not Recovered/Not Resolved]
  - Muscle tightness [Not Recovered/Not Resolved]
  - Tremor [Recovered/Resolved]
  - Muscle tightness [Recovered/Resolved]
  - Confusional state [Not Recovered/Not Resolved]
  - Fear [Not Recovered/Not Resolved]

NARRATIVE: CASE EVENT DATE: 20121220
